FAERS Safety Report 26040262 (Version 1)
Quarter: 2025Q4

REPORT INFORMATION
  Report Type: Spontaneous
  Country: BD (occurrence: BD)
  Receive Date: 20251113
  Receipt Date: 20251113
  Transmission Date: 20260118
  Serious: Yes (Other)
  Sender: RANBAXY
  Company Number: BD-SUN PHARMACEUTICAL INDUSTRIES LTD-2025RR-535918

PATIENT
  Age: 26 Year
  Sex: Male

DRUGS (5)
  1. TADALAFIL [Suspect]
     Active Substance: TADALAFIL
     Indication: Erectile dysfunction
     Dosage: 2.5 MILLIGRAM
     Route: 065
  2. TADALAFIL [Suspect]
     Active Substance: TADALAFIL
     Dosage: HALF OF TADAFIL
     Route: 065
  3. TADALAFIL [Suspect]
     Active Substance: TADALAFIL
     Dosage: 2.5 MILLIGRAM, DAILY
     Route: 065
  4. ESCITALOPRAM [Suspect]
     Active Substance: ESCITALOPRAM OXALATE
     Indication: Erectile dysfunction
     Dosage: 5 MILLIGRAM
     Route: 065
  5. VITAMINS [Suspect]
     Active Substance: VITAMINS
     Indication: Erectile dysfunction
     Dosage: UNK
     Route: 065

REACTIONS (9)
  - Fall [Recovered/Resolved]
  - Palpitations [Recovered/Resolved]
  - Dizziness [Recovered/Resolved]
  - Headache [Recovered/Resolved]
  - Anxiety [Recovered/Resolved]
  - Brain fog [Recovered/Resolved]
  - Fatigue [Recovered/Resolved]
  - Syncope [Recovered/Resolved]
  - Fear of death [Recovered/Resolved]
